FAERS Safety Report 7128180-8 (Version None)
Quarter: 2010Q4

REPORT INFORMATION
  Report Type: 
  Country: None (occurrence: None)
  Receive Date: 20101112
  Receipt Date: 20101030
  Transmission Date: 20110411
  Serious: Yes (Other)
  Sender: FDA-Public Use
  Company Number: AXC-2010-000287

PATIENT
  Age: 33 Year
  Sex: Male

DRUGS (1)
  1. MESALAMINE [Suspect]
     Indication: COLITIS ULCERATIVE
     Dosage: ORAL
     Route: 048

REACTIONS (4)
  - COLONOSCOPY ABNORMAL [None]
  - EOSINOPHILIC COLITIS [None]
  - HAEMATOCHEZIA [None]
  - WEIGHT DECREASED [None]
